FAERS Safety Report 8575948-7 (Version None)
Quarter: 2012Q3

REPORT INFORMATION
  Report Type: 
  Country: None (occurrence: None)
  Receive Date: 20120807
  Receipt Date: 20120727
  Transmission Date: 20120928
  Serious: Yes (Hospitalization)
  Sender: FDA-Public Use
  Company Number: US-BAYER-2012-076510

PATIENT
  Age: 27 Year
  Sex: Female

DRUGS (6)
  1. FIBER [Concomitant]
  2. ETODOLAC [Concomitant]
     Dosage: DAILY
  3. GLUCOSAMINE [Concomitant]
  4. ASPIRIN [Concomitant]
     Indication: CHEST PAIN
  5. YASMIN [Suspect]
     Indication: ENDOMETRIOSIS
     Dosage: UNK
  6. SENOKOT [Concomitant]

REACTIONS (2)
  - DEEP VEIN THROMBOSIS [None]
  - PULMONARY EMBOLISM [None]
